FAERS Safety Report 11347262 (Version 1)
Quarter: 2015Q3

REPORT INFORMATION
  Report Type: Spontaneous
  Country: US (occurrence: US)
  Receive Date: 20150803
  Receipt Date: 20150803
  Transmission Date: 20151125
  Serious: No
  Sender: FDA-Public Use
  Company Number: US-ELI_LILLY_AND_COMPANY-US201105002767

PATIENT
  Age: 67 Year
  Sex: Female

DRUGS (1)
  1. ZYPREXA [Suspect]
     Active Substance: OLANZAPINE
     Indication: DEPRESSION
     Dosage: UNK

REACTIONS (8)
  - Feeling abnormal [Unknown]
  - Nervousness [Unknown]
  - Bruxism [Unknown]
  - Off label use [Recovered/Resolved]
  - Dry mouth [Unknown]
  - Mastication disorder [Unknown]
  - Swelling [Unknown]
  - Urticaria [Unknown]
